FAERS Safety Report 9387076 (Version 1)
Quarter: 2013Q3

REPORT INFORMATION
  Report Type: Spontaneous
  Country: IT (occurrence: IT)
  Receive Date: 20130708
  Receipt Date: 20130708
  Transmission Date: 20140515
  Serious: Yes (Hospitalization)
  Sender: FDA-Public Use
  Company Number: PHHY2013IT069983

PATIENT
  Sex: Female

DRUGS (3)
  1. ALLOPURINOL [Suspect]
     Indication: HYPERURICAEMIA
     Dosage: 300 MG, QOD
     Route: 048
     Dates: start: 20130518, end: 20130601
  2. AMLODIPINE [Concomitant]
  3. LISINOPRIL + HIDROCLOROTIAZIDA [Concomitant]

REACTIONS (4)
  - Decreased appetite [Recovered/Resolved]
  - Nausea [Recovered/Resolved]
  - Pyrexia [Recovered/Resolved]
  - Urticaria [Recovered/Resolved]
